FAERS Safety Report 11058940 (Version 1)
Quarter: 2015Q2

REPORT INFORMATION
  Report Type: Report from Study
  Country: US (occurrence: None)
  Receive Date: 20150420
  Receipt Date: 20150420
  Transmission Date: 20150821
  Serious: No
  Sender: FDA-Public Use
  Company Number: AEGR001239

PATIENT
  Age: 39 Year
  Sex: Female
  Weight: 95.7 kg

DRUGS (3)
  1. EZETIMIBE. [Concomitant]
     Active Substance: EZETIMIBE
  2. PRAVACHOL (PRAVASTATIN SODIUM) [Concomitant]
  3. JUXTAPID [Suspect]
     Active Substance: LOMITAPIDE MESYLATE
     Indication: TYPE IIA HYPERLIPIDAEMIA
     Route: 048
     Dates: start: 20150305

REACTIONS (1)
  - Constipation [None]

NARRATIVE: CASE EVENT DATE: 20150307
